FAERS Safety Report 24687465 (Version 1)
Quarter: 2024Q4

REPORT INFORMATION
  Report Type: Report from Study
  Country: CA (occurrence: CA)
  Receive Date: 20241202
  Receipt Date: 20241202
  Transmission Date: 20250114
  Serious: Yes (Other)
  Sender: TEVA
  Company Number: CA-TEVA-VS-3269814

PATIENT
  Age: 47 Year
  Sex: Female

DRUGS (5)
  1. AJOVY [Suspect]
     Active Substance: FREMANEZUMAB-VFRM
     Indication: Migraine prophylaxis
     Route: 058
     Dates: start: 20241120
  2. AJOVY [Suspect]
     Active Substance: FREMANEZUMAB-VFRM
     Indication: Migraine prophylaxis
     Route: 058
     Dates: start: 20240715
  3. GABAPENTIN [Concomitant]
     Active Substance: GABAPENTIN
     Indication: Product used for unknown indication
  4. BENADRYL [Concomitant]
     Active Substance: DIPHENHYDRAMINE HYDROCHLORIDE
     Indication: Food allergy
  5. BACLOFEN [Concomitant]
     Active Substance: BACLOFEN
     Indication: Product used for unknown indication

REACTIONS (17)
  - Colitis [Unknown]
  - Influenza like illness [Unknown]
  - Inappropriate schedule of product administration [Unknown]
  - Feeling abnormal [Unknown]
  - Migraine [Not Recovered/Not Resolved]
  - Pain [Unknown]
  - Hypoaesthesia oral [Unknown]
  - Injection site erythema [Recovering/Resolving]
  - Malaise [Unknown]
  - Oropharyngeal pain [Unknown]
  - Biopsy muscle [Unknown]
  - Palpitations [Unknown]
  - Dizziness [Unknown]
  - Injection site pain [Unknown]
  - Nervousness [Unknown]
  - Glossodynia [Unknown]
  - Pharyngeal hypoaesthesia [Unknown]

NARRATIVE: CASE EVENT DATE: 20240101
